FAERS Safety Report 7293919-8 (Version None)
Quarter: 2011Q1

REPORT INFORMATION
  Report Type: 
  Country: None (occurrence: None)
  Receive Date: 20110215
  Receipt Date: 20110204
  Transmission Date: 20110831
  Serious: Yes (Other)
  Sender: FDA-Public Use
  Company Number: US-JNJFOC-20110202064

PATIENT
  Sex: Female
  Weight: 70.31 kg

DRUGS (15)
  1. BALSALAZIDE DISODIUM [Concomitant]
     Indication: CROHN'S DISEASE
     Route: 048
  2. CALCIUM [Concomitant]
     Indication: CROHN'S DISEASE
     Dosage: TWICE DAILY
     Route: 048
  3. ZYRTEC [Concomitant]
     Indication: MULTIPLE ALLERGIES
     Route: 048
  4. REMICADE [Suspect]
     Indication: CROHN'S DISEASE
     Route: 042
  5. ALPRAZOLAM [Concomitant]
     Indication: ANXIETY
     Dosage: AS NEEDED
     Route: 048
  6. HYDROCODONE BITARTRATE + ACETAMINOPHEN [Concomitant]
     Indication: OSTEOPOROSIS
     Dosage: 10MG/660MG ONE EVERY 8 HOURS AS NEEDED.
  7. MIRTAZAPINE [Concomitant]
     Indication: INSOMNIA
     Route: 048
  8. VITAMIN D [Concomitant]
     Indication: CROHN'S DISEASE
     Dosage: 1000 UNITS TWICE DAILY.
     Route: 048
  9. TORSEMIDE [Concomitant]
     Indication: SWELLING
     Route: 048
  10. TRIAMTERENE AND HYDROCHLOROTHIAZIDE [Concomitant]
     Indication: BLOOD PRESSURE
     Dosage: 37.5MG/25MG ONCE DAILY
     Route: 048
  11. POTASSIUM [Concomitant]
     Indication: SWELLING
     Route: 048
  12. BUPROPION SR [Concomitant]
     Indication: ANXIETY
     Route: 048
  13. PROTONIX [Concomitant]
     Indication: GASTROOESOPHAGEAL REFLUX DISEASE
     Route: 048
  14. FELODIPINE [Concomitant]
     Indication: BLOOD PRESSURE
     Route: 048
  15. CARVEDILOL [Concomitant]
     Indication: BLOOD PRESSURE
     Route: 048

REACTIONS (5)
  - FALL [None]
  - RASH ERYTHEMATOUS [None]
  - FEELING HOT [None]
  - ABNORMAL LOSS OF WEIGHT [None]
  - RIB FRACTURE [None]
